FAERS Safety Report 6765530-6 (Version None)
Quarter: 2010Q2

REPORT INFORMATION
  Report Type: 
  Country: None (occurrence: None)
  Receive Date: 20100611
  Receipt Date: 20100602
  Transmission Date: 20101027
  Serious: Yes (Other)
  Sender: FDA-Public Use
  Company Number: US-JNJFOC-20100602372

PATIENT
  Sex: Female
  Weight: 97.52 kg

DRUGS (4)
  1. IBUPROFEN [Suspect]
     Indication: DRUG USE FOR UNKNOWN INDICATION
     Route: 065
  2. KETOPROFEN [Suspect]
     Indication: DRUG USE FOR UNKNOWN INDICATION
     Route: 065
  3. THEO-DUR [Suspect]
     Indication: ASTHMA
     Route: 065
  4. LOPRESSOR [Concomitant]
     Indication: MENTAL DISORDER

REACTIONS (4)
  - DYSPNOEA [None]
  - NAUSEA [None]
  - PRURITUS [None]
  - SWELLING [None]
